FAERS Safety Report 6493944-0 (Version None)
Quarter: 2009Q4

REPORT INFORMATION
  Report Type: 
  Country: None (occurrence: None)
  Receive Date: 20091214
  Receipt Date: 20090122
  Transmission Date: 20100525
  Serious: No
  Sender: FDA-Public Use
  Company Number: US-BRISTOL-MYERS SQUIBB COMPANY-14421622

PATIENT
  Age: 42 Year
  Sex: Male
  Weight: 109 kg

DRUGS (1)
  1. ABILIFY [Suspect]
     Indication: MAJOR DEPRESSION
     Route: 048
     Dates: start: 20081101

REACTIONS (2)
  - HEAD INJURY [None]
  - SYNCOPE [None]
